FAERS Safety Report 14527246 (Version 1)
Quarter: 2018Q1

REPORT INFORMATION
  Report Type: Spontaneous
  Country: US (occurrence: US)
  Receive Date: 20180213
  Receipt Date: 20180213
  Transmission Date: 20180509
  Serious: Yes (Life-Threatening, Disabling)
  Sender: FDA-Public Use
  Company Number: None

PATIENT
  Age: 81 Year
  Sex: Female
  Weight: 62.6 kg

DRUGS (9)
  1. COMBIGAN [Suspect]
     Active Substance: BRIMONIDINE TARTRATE\TIMOLOL MALEATE
     Indication: GLAUCOMA
     Route: 047
     Dates: start: 20121110, end: 20170315
  2. BAUSCH + LOMB MURO 128 SODIUM SOLUTION [Concomitant]
  3. LUMIGAN [Suspect]
     Active Substance: BIMATOPROST
  4. SYSTANE (HYPROMELLOSE 2910 (4000 MPA.S)) [Concomitant]
     Active Substance: HYPROMELLOSE 2910 (4000 MPA.S)
  5. COZAAR [Concomitant]
     Active Substance: LOSARTAN POTASSIUM
  6. AMLODIPINE BESYLATE. [Concomitant]
     Active Substance: AMLODIPINE BESYLATE
  7. TYLENOL EXTRA STRENGTH [Concomitant]
     Active Substance: ACETAMINOPHEN
  8. METOPROLOL. [Concomitant]
     Active Substance: METOPROLOL
  9. LOSARTAN POTASSIUM. [Concomitant]
     Active Substance: LOSARTAN POTASSIUM

REACTIONS (9)
  - Skin exfoliation [None]
  - Burning sensation [None]
  - Ocular hyperaemia [None]
  - Pruritus [None]
  - Eye swelling [None]
  - Skin discolouration [None]
  - Muscular weakness [None]
  - Eye pain [None]
  - Tenderness [None]

NARRATIVE: CASE EVENT DATE: 20121102
